FAERS Safety Report 20258023 (Version 1)
Quarter: 2021Q4

REPORT INFORMATION
  Report Type: Spontaneous
  Country: US (occurrence: None)
  Receive Date: 20211229
  Receipt Date: 20211229
  Transmission Date: 20220303
  Serious: Yes (Other)
  Sender: FDA-Public Use
  Company Number: None

PATIENT
  Sex: Male

DRUGS (2)
  1. PRAVASTATIN [Suspect]
     Active Substance: PRAVASTATIN
  2. ATORVASTATIN [Suspect]
     Active Substance: ATORVASTATIN

REACTIONS (3)
  - Headache [None]
  - Rash [None]
  - Skin burning sensation [None]
